FAERS Safety Report 19272044 (Version 1)
Quarter: 2021Q2

REPORT INFORMATION
  Report Type: Spontaneous
  Country: FI (occurrence: FI)
  Receive Date: 20210519
  Receipt Date: 20210519
  Transmission Date: 20210717
  Serious: Yes (Hospitalization)
  Sender: FDA-Public Use
  Company Number: FI-AMGEN-FINSP2021075060

PATIENT
  Age: 68 Year
  Sex: Female

DRUGS (1)
  1. MVASI [Suspect]
     Active Substance: BEVACIZUMAB-AWWB
     Indication: FALLOPIAN TUBE CANCER
     Dosage: UNK, CYCLICAL
     Route: 042
     Dates: start: 20200306, end: 20210406

REACTIONS (6)
  - Large intestine perforation [Recovering/Resolving]
  - Colonic abscess [Recovering/Resolving]
  - Abdominal pain [Recovering/Resolving]
  - Hepatic enzyme increased [Recovering/Resolving]
  - Metastases to peritoneum [Recovering/Resolving]
  - Abscess drainage [Recovering/Resolving]

NARRATIVE: CASE EVENT DATE: 20210426
